FAERS Safety Report 21812902 (Version 1)
Quarter: 2023Q1

REPORT INFORMATION
  Report Type: Spontaneous
  Country: US (occurrence: None)
  Receive Date: 20230102
  Receipt Date: 20230102
  Transmission Date: 20230418
  Serious: Yes (Other)
  Sender: FDA-Public Use
  Company Number: None

PATIENT
  Age: 70 Year
  Sex: Male
  Weight: 101.25 kg

DRUGS (1)
  1. METOPROLOL [Suspect]
     Active Substance: METOPROLOL
     Indication: Blood pressure measurement
     Dosage: FREQUENCY : DAILY;?
     Route: 048

REACTIONS (8)
  - Discomfort [None]
  - Agitation [None]
  - Dry skin [None]
  - Scab [None]
  - Pruritus [None]
  - Poor quality sleep [None]
  - Scratch [None]
  - Skin injury [None]

NARRATIVE: CASE EVENT DATE: 20221122
